FAERS Safety Report 25376705 (Version 1)
Quarter: 2025Q2

REPORT INFORMATION
  Report Type: Report from Study
  Country: CO (occurrence: CO)
  Receive Date: 20250530
  Receipt Date: 20250530
  Transmission Date: 20250717
  Serious: Yes (Other)
  Sender: MDD OPERATIONS
  Company Number: CO-ZAMBON-202501842COR

PATIENT
  Age: 68 Year
  Sex: Female
  Weight: 48 kg

DRUGS (3)
  1. XADAGO [Suspect]
     Active Substance: SAFINAMIDE MESYLATE
     Indication: Parkinson^s disease
     Dosage: 50 MG/24 HOURS
     Route: 048
     Dates: start: 20250509
  2. CARBIDOPA\LEVODOPA [Concomitant]
     Active Substance: CARBIDOPA\LEVODOPA
     Indication: Parkinson^s disease
  3. NEUPRO [Concomitant]
     Active Substance: ROTIGOTINE
     Indication: Parkinson^s disease

REACTIONS (6)
  - Heart rate decreased [Recovering/Resolving]
  - Blood pressure decreased [Recovering/Resolving]
  - Chest pain [Recovering/Resolving]
  - Depressed mood [Recovering/Resolving]
  - Vomiting [Recovering/Resolving]
  - Nausea [Recovering/Resolving]

NARRATIVE: CASE EVENT DATE: 20250514
